FAERS Safety Report 5050338-2 (Version None)
Quarter: 2006Q3

REPORT INFORMATION
  Report Type: 
  Country: None (occurrence: None)
  Receive Date: 20060706
  Receipt Date: 20060629
  Transmission Date: 20061208
  Serious: Yes (Life-Threatening, Other)
  Sender: FDA-Public Use
  Company Number: 200614367BWH

PATIENT
  Age: 51 Year
  Sex: Male

DRUGS (3)
  1. TRASYLOL [Suspect]
     Indication: AORTIC VALVE REPAIR
     Dosage: SEE IMAGE, INTRAVENOUS
     Route: 042
     Dates: start: 20060629
  2. VANCOMYCIN [Concomitant]
  3. CEFTRIAXONE [Concomitant]

REACTIONS (4)
  - ANAPHYLACTIC REACTION [None]
  - ELECTROMECHANICAL DISSOCIATION [None]
  - POST PROCEDURAL COMPLICATION [None]
  - VASCULAR BYPASS GRAFT [None]
